FAERS Safety Report 17199606 (Version 1)
Quarter: 2019Q4

REPORT INFORMATION
  Report Type: Report from Study
  Country: None (occurrence: GR)
  Receive Date: 20191226
  Receipt Date: 20191226
  Transmission Date: 20200122
  Serious: Yes (Hospitalization)
  Sender: FDA-Public Use
  Company Number: GR-ABBVIE-19K-066-3207052-00

PATIENT
  Sex: Female
  Weight: 62 kg

DRUGS (6)
  1. DUODOPA [Suspect]
     Active Substance: CARBIDOPA\LEVODOPA
     Indication: PARKINSON^S DISEASE
     Dosage: MD: 10ML; CD: 5ML/H; ED: 3.7ML
     Route: 050
     Dates: start: 201303
  2. MENTIFAR [Concomitant]
     Indication: PRODUCT USED FOR UNKNOWN INDICATION
     Route: 048
  3. T4 [Concomitant]
     Active Substance: LEVOTHYROXINE
     Dosage: FREQUENCY TEXT -ONCE DAILY DURING WEEKDAYS MONDAY-FRIDAY
     Route: 048
  4. T4 [Concomitant]
     Active Substance: LEVOTHYROXINE
     Indication: HYPOTHYROIDISM
     Dosage: FREQUENCY TEXT -ONCE DAILY DURING WEEKENDS
     Route: 048
  5. QUETIAPINE. [Concomitant]
     Active Substance: QUETIAPINE
     Indication: PRODUCT USED FOR UNKNOWN INDICATION
     Route: 048
  6. MADOPAR [Concomitant]
     Active Substance: BENSERAZIDE HYDROCHLORIDE\LEVODOPA
     Indication: PARKINSON^S DISEASE
     Dosage: (200+50)MG?FREQUENCY TEXT -AT NIGHT, WHEN THE PUMP IS TAKEN OFF
     Route: 048

REACTIONS (2)
  - On and off phenomenon [Not Recovered/Not Resolved]
  - Fall [Recovered/Resolved]
